FAERS Safety Report 19205586 (Version 1)
Quarter: 2021Q2

REPORT INFORMATION
  Report Type: Spontaneous
  Country: US (occurrence: US)
  Receive Date: 20210503
  Receipt Date: 20210503
  Transmission Date: 20210717
  Serious: No
  Sender: FDA-Public Use
  Company Number: US-FARMAPROD-202104-0490

PATIENT
  Sex: Female

DRUGS (25)
  1. OXERVATE [Suspect]
     Active Substance: CENEGERMIN-BKBJ
     Indication: NEUROTROPHIC KERATOPATHY
     Route: 047
     Dates: start: 20210323
  2. VITAMINE C [Concomitant]
     Active Substance: ASCORBIC ACID
  3. MULTIVITAMINE [Concomitant]
     Active Substance: VITAMINS
     Dosage: DAILY
  4. TRAVATAN [Concomitant]
     Active Substance: TRAVOPROST
  5. ATORVASTATIN CALCIUM. [Concomitant]
     Active Substance: ATORVASTATIN CALCIUM
  6. FISH OIL [Concomitant]
     Active Substance: FISH OIL
     Dosage: 100?150 MG
  7. FLECAINIDE [Concomitant]
     Active Substance: FLECAINIDE
  8. ALPHAGAN P [Concomitant]
     Active Substance: BRIMONIDINE TARTRATE
  9. VITAMIN B COMPLEX [Concomitant]
     Active Substance: CYANOCOBALAMIN\DEXPANTHENOL\NIACINAMIDE\PYRIDOXINE HYDROCHLORIDE\RIBOFLAVIN 5^-PHOSPHATE SODIUM\THIAMINE HYDROCHLORIDE\VITAMIN B COMPLEX
  10. PREVACID [Concomitant]
     Active Substance: LANSOPRAZOLE
     Dosage: DELAYED RELEASE CAPSULE
  11. SINGULAIR [Concomitant]
     Active Substance: MONTELUKAST SODIUM
  12. ADVAIR HFA [Concomitant]
     Active Substance: FLUTICASONE PROPIONATE\SALMETEROL XINAFOATE
     Dosage: 100?50 MCG BLISTER WITH DEVICE
  13. VITAMIN D3 [Concomitant]
     Active Substance: CHOLECALCIFEROL
  14. OFLOXACIN. [Concomitant]
     Active Substance: OFLOXACIN
  15. ELIQUIS [Concomitant]
     Active Substance: APIXABAN
  16. BACITRACIN/POLYMYXIN [Concomitant]
     Active Substance: BACITRACIN ZINC\POLYMYXIN B SULFATE
  17. PROAIR HFA [Concomitant]
     Active Substance: ALBUTEROL SULFATE
  18. VITAMINE B12 [Concomitant]
     Active Substance: CYANOCOBALAMIN
  19. ATROVENT [Concomitant]
     Active Substance: IPRATROPIUM BROMIDE
  20. LASIX [Concomitant]
     Active Substance: FUROSEMIDE
  21. BISOPROLOL/HYDROCHLOROTHIAZIDE [Concomitant]
     Active Substance: BISOPROLOL FUMARATE\HYDROCHLOROTHIAZIDE
  22. BIOTIN [Concomitant]
     Active Substance: BIOTIN
  23. TIZANIDINE HYDROCHLORIDE. [Concomitant]
     Active Substance: TIZANIDINE HYDROCHLORIDE
  24. LOSARTAN AND HYDROCHLOROTHIAZIDE [Concomitant]
     Active Substance: HYDROCHLOROTHIAZIDE\LOSARTAN POTASSIUM
  25. REFRESH OPTIVE [Concomitant]
     Active Substance: CARBOXYMETHYLCELLULOSE SODIUM\GLYCERIN

REACTIONS (1)
  - Eyelid pain [Unknown]
